FAERS Safety Report 10085902 (Version 1)
Quarter: 2014Q2

REPORT INFORMATION
  Report Type: Spontaneous
  Country: IT (occurrence: IT)
  Receive Date: 20140418
  Receipt Date: 20140418
  Transmission Date: 20141212
  Serious: Yes (Hospitalization)
  Sender: FDA-Public Use
  Company Number: IT-SA-2014SA043182

PATIENT
  Age: 63 Year
  Sex: Female

DRUGS (4)
  1. APIDRA [Suspect]
     Indication: DIABETES MELLITUS
     Route: 058
     Dates: start: 20130101, end: 20130916
  2. PANTOPRAZOLE [Concomitant]
     Route: 048
  3. CARDIOASPIRIN [Concomitant]
     Route: 048
  4. TORVAST [Concomitant]
     Route: 048

REACTIONS (1)
  - Vertigo [Unknown]
